FAERS Safety Report 16967064 (Version 1)
Quarter: 2019Q4

REPORT INFORMATION
  Report Type: Spontaneous
  Country: US (occurrence: US)
  Receive Date: 20190910
  Receipt Date: 20190910
  Transmission Date: 20200122
  Serious: Yes (Hospitalization)
  Sender: FDA-Public Use
  Company Number: None

PATIENT
  Age: 70 Year
  Sex: Male

DRUGS (1)
  1. IBUPROFEN. [Suspect]
     Active Substance: IBUPROFEN
     Indication: TOOTH EXTRACTION
     Route: 048
     Dates: start: 20190823, end: 20190828

REACTIONS (3)
  - Acute kidney injury [None]
  - Hyperkalaemia [None]
  - Electrocardiogram change [None]

NARRATIVE: CASE EVENT DATE: 20190828
